FAERS Safety Report 19835168 (Version 5)
Quarter: 2023Q1

REPORT INFORMATION
  Report Type: Spontaneous
  Country: US (occurrence: US)
  Receive Date: 20210915
  Receipt Date: 20230105
  Transmission Date: 20230417
  Serious: Yes (Other)
  Sender: FDA-Public Use
  Company Number: US-PFIZER INC-202100928303

PATIENT
  Age: 52 Year
  Sex: Female

DRUGS (2)
  1. IBRANCE [Suspect]
     Active Substance: PALBOCICLIB
     Indication: Breast cancer female
     Dosage: 125 MG, CYCLIC (QD PO FOR 21 DAYS ON 7OFF)
     Route: 048
     Dates: start: 20210526
  2. LETROZOLE [Concomitant]
     Active Substance: LETROZOLE
     Dosage: UNK

REACTIONS (11)
  - Sepsis [Not Recovered/Not Resolved]
  - Product dose omission issue [Unknown]
  - Dry skin [Not Recovered/Not Resolved]
  - Nerve injury [Not Recovered/Not Resolved]
  - Hypoaesthesia [Not Recovered/Not Resolved]
  - Paraesthesia [Not Recovered/Not Resolved]
  - Pain [Not Recovered/Not Resolved]
  - Burning sensation [Not Recovered/Not Resolved]
  - Pruritus [Unknown]
  - Bacterial infection [Not Recovered/Not Resolved]
  - Rash vesicular [Not Recovered/Not Resolved]
